FAERS Safety Report 8324965-0 (Version None)
Quarter: 2012Q2

REPORT INFORMATION
  Report Type: 
  Country: None (occurrence: None)
  Receive Date: 20120501
  Receipt Date: 20100302
  Transmission Date: 20120825
  Serious: No
  Sender: FDA-Public Use
  Company Number: US-TEVA-2010001252

PATIENT
  Sex: Female
  Weight: 61.29 kg

DRUGS (2)
  1. NUVARING [Concomitant]
     Indication: CONTRACEPTION
     Route: 067
     Dates: start: 20091101
  2. NUVIGIL [Suspect]
     Indication: NARCOLEPSY
     Dosage: 250 MILLIGRAM;
     Route: 048
     Dates: start: 20091101

REACTIONS (2)
  - HEADACHE [None]
  - DRUG INEFFECTIVE [None]
